FAERS Safety Report 5286033-4 (Version None)
Quarter: 2007Q2

REPORT INFORMATION
  Report Type: 
  Country: None (occurrence: None)
  Receive Date: 20070404
  Receipt Date: 20070321
  Transmission Date: 20071010
  Serious: Yes (Hospitalization)
  Sender: FDA-Public Use
  Company Number: US-AMGEN-US216225

PATIENT
  Sex: Female

DRUGS (2)
  1. ENBREL [Suspect]
     Indication: RHEUMATOID ARTHRITIS
     Route: 058
     Dates: start: 19990701, end: 20060901
  2. ARAVA [Concomitant]
     Route: 048
     Dates: start: 19990701

REACTIONS (9)
  - ARTHRITIS INFECTIVE [None]
  - CATARACT [None]
  - DUODENAL ULCER [None]
  - INFECTION [None]
  - PULMONARY THROMBOSIS [None]
  - SJOGREN'S SYNDROME [None]
  - SPINAL FRACTURE [None]
  - SUBCUTANEOUS NODULE [None]
  - THROMBOSIS [None]
